FAERS Safety Report 8018421-7 (Version None)
Quarter: 2012Q1

REPORT INFORMATION
  Report Type: 
  Country: None (occurrence: None)
  Receive Date: 20120103
  Receipt Date: 20111220
  Transmission Date: 20120608
  Serious: Yes (Other)
  Sender: FDA-Public Use
  Company Number: ES-SANOFI-AVENTIS-2011SA084069

PATIENT
  Sex: Female

DRUGS (2)
  1. SOLOSTAR [Suspect]
     Indication: DEVICE THERAPY
     Dates: start: 20110101, end: 20111201
  2. APIDRA [Suspect]
     Dosage: FREQUENCY: WITH BREAKFAST, LUNCH AND DINNER
     Route: 065
     Dates: start: 20110101, end: 20111201

REACTIONS (5)
  - ASTHENIA [None]
  - DIZZINESS [None]
  - SYNCOPE [None]
  - ALTERED STATE OF CONSCIOUSNESS [None]
  - MUSCLE SPASMS [None]
